FAERS Safety Report 14719689 (Version 1)
Quarter: 2018Q2

REPORT INFORMATION
  Report Type: Spontaneous
  Country: SE (occurrence: SE)
  Receive Date: 20180405
  Receipt Date: 20180405
  Transmission Date: 20180711
  Serious: Yes (Hospitalization)
  Sender: FDA-Public Use
  Company Number: SE-TEVA-2018-SE-876896

PATIENT
  Age: 33 Year
  Sex: Female

DRUGS (4)
  1. ACETYLCYSTEIN [Suspect]
     Active Substance: ACETYLCYSTEINE
     Indication: ANALGESIC DRUG LEVEL INCREASED
     Dosage: GIVEN ^ACCORDING TO PM DURING STEP 2^
     Dates: start: 20180203
  2. LAMOTRIGINE. [Suspect]
     Active Substance: LAMOTRIGINE
     Indication: PSYCHOGENIC SEIZURE
     Dosage: UNCLEAR AMOUNT
     Dates: start: 20180203, end: 20180203
  3. FLUOXETINE [Suspect]
     Active Substance: FLUOXETINE HYDROCHLORIDE
     Indication: DEPRESSION
     Dosage: UNCLEAR AMOUNT
     Dates: start: 20180203, end: 20180203
  4. ALVEDON [Suspect]
     Active Substance: ACETAMINOPHEN
     Dosage: UNCLEAR AMOUNT
     Dates: start: 20180203, end: 20180203

REACTIONS (4)
  - Analgesic drug level increased [Unknown]
  - Intentional self-injury [Unknown]
  - Skin reaction [Recovered/Resolved]
  - Toxicity to various agents [Unknown]

NARRATIVE: CASE EVENT DATE: 20180203
